FAERS Safety Report 9027920 (Version 1)
Quarter: 2013Q1

REPORT INFORMATION
  Report Type: Spontaneous
  Country: US (occurrence: US)
  Receive Date: 20130123
  Receipt Date: 20130123
  Transmission Date: 20140127
  Serious: Yes (Other)
  Sender: FDA-Public Use
  Company Number: US-ASTRAZENECA-2013SE03569

PATIENT
  Age: 70 Year
  Sex: Female

DRUGS (5)
  1. NEXIUM [Suspect]
     Indication: GASTROOESOPHAGEAL REFLUX DISEASE
     Route: 048
  2. ADVAIR [Concomitant]
  3. SPIRIVA [Concomitant]
     Dosage: TWO TIMES A DAY
  4. EYEDROPS [Concomitant]
     Indication: ABNORMAL SENSATION IN EYE
     Dosage: DAILY
  5. EYEDROPS [Concomitant]
     Indication: ABNORMAL SENSATION IN EYE
     Dosage: TWICE DAILY

REACTIONS (6)
  - Blindness [Unknown]
  - Intraocular pressure test abnormal [Unknown]
  - Hypoaesthesia [Unknown]
  - Hypoaesthesia [Unknown]
  - Peripheral coldness [Unknown]
  - Paraesthesia [Unknown]
